FAERS Safety Report 8618597-4 (Version None)
Quarter: 2012Q3

REPORT INFORMATION
  Report Type: 
  Country: None (occurrence: None)
  Receive Date: 20120824
  Receipt Date: 20120820
  Transmission Date: 20120928
  Serious: No
  Sender: FDA-Public Use
  Company Number: US-PFIZER INC-2012203817

PATIENT
  Age: 53 Year
  Sex: Female

DRUGS (4)
  1. LIDODERM [Concomitant]
     Dosage: UNK
  2. DEPO-ESTRADIOL [Suspect]
     Indication: POSTMENOPAUSE
     Dosage: UNK, ONCE A MONTH
     Route: 030
  3. CYMBALTA [Concomitant]
     Dosage: UNK
  4. SYNTHROID [Concomitant]
     Dosage: UNK

REACTIONS (1)
  - DRUG INEFFECTIVE [None]
